FAERS Safety Report 8199006-9 (Version None)
Quarter: 2012Q1

REPORT INFORMATION
  Report Type: 
  Country: None (occurrence: None)
  Receive Date: 20120309
  Receipt Date: 20120229
  Transmission Date: 20120608
  Serious: Yes (Other)
  Sender: FDA-Public Use
  Company Number: US-ROCHE-1020272

PATIENT
  Sex: Male
  Weight: 97.61 kg

DRUGS (2)
  1. ACCUTANE [Suspect]
     Dates: start: 19960201, end: 19960701
  2. ACCUTANE [Suspect]
     Indication: ACNE
     Dates: start: 19951101

REACTIONS (9)
  - INFLAMMATORY BOWEL DISEASE [None]
  - CHAPPED LIPS [None]
  - COLONIC POLYP [None]
  - DRY EYE [None]
  - EPISCLERITIS [None]
  - EMOTIONAL DISTRESS [None]
  - DRY SKIN [None]
  - CROHN'S DISEASE [None]
  - ACNE [None]
